FAERS Safety Report 5132647-1 (Version None)
Quarter: 2006Q4

REPORT INFORMATION
  Report Type: 
  Country: None (occurrence: None)
  Receive Date: 20061023
  Receipt Date: 20060921
  Transmission Date: 20070319
  Serious: Yes (Hospitalization)
  Sender: FDA-Public Use
  Company Number: HQWYE112425SEP06

PATIENT
  Sex: Male
  Weight: 72 kg

DRUGS (9)
  1. ENBREL [Suspect]
     Indication: RHEUMATOID ARTHRITIS
     Route: 058
     Dates: start: 20060510, end: 20060523
  2. ENBREL [Suspect]
     Route: 058
     Dates: start: 20060704, end: 20060807
  3. ENBREL [Suspect]
     Route: 058
     Dates: start: 20060818, end: 20060824
  4. LANSOPRAZOLE [Concomitant]
     Route: 048
     Dates: start: 20060403
  5. PREDNISOLONE [Concomitant]
     Route: 048
     Dates: start: 20060112, end: 20060718
  6. PREDNISOLONE [Concomitant]
     Route: 048
     Dates: start: 20060719, end: 20060801
  7. ACTOS [Concomitant]
     Indication: DIABETES MELLITUS
     Route: 048
     Dates: start: 20060112, end: 20060313
  8. ACTOS [Concomitant]
     Route: 048
     Dates: start: 20060313
  9. BASEN [Concomitant]
     Indication: DIABETES MELLITUS
     Route: 048
     Dates: start: 20060213

REACTIONS (4)
  - ALANINE AMINOTRANSFERASE INCREASED [None]
  - ASPARTATE AMINOTRANSFERASE INCREASED [None]
  - MALAISE [None]
  - WHITE BLOOD CELL COUNT DECREASED [None]
